FAERS Safety Report 7869142-2 (Version None)
Quarter: 2011Q4

REPORT INFORMATION
  Report Type: 
  Country: None (occurrence: None)
  Receive Date: 20111028
  Receipt Date: 20101228
  Transmission Date: 20120403
  Serious: Yes (Hospitalization)
  Sender: FDA-Public Use
  Company Number: US-AMGEN-USASP2010012051

PATIENT
  Age: 57 Year
  Sex: Male

DRUGS (2)
  1. INFLUENZA [Concomitant]
     Dates: start: 20101101, end: 20101101
  2. ENBREL [Suspect]
     Indication: RHEUMATOID ARTHRITIS
     Dates: start: 20040101

REACTIONS (4)
  - NAUSEA [None]
  - STAPHYLOCOCCAL INFECTION [None]
  - OROPHARYNGEAL PAIN [None]
  - MYALGIA [None]
